FAERS Safety Report 9380602 (Version 3)
Quarter: 2014Q2

REPORT INFORMATION
  Report Type: Spontaneous
  Country: ES (occurrence: ES)
  Receive Date: 20130702
  Receipt Date: 20140626
  Transmission Date: 20141212
  Serious: Yes (Other)
  Sender: FDA-Public Use
  Company Number: ES-VERTEX PHARMACEUTICALS INC-2013-007655

PATIENT
  Age: 53 Year
  Sex: Female

DRUGS (5)
  1. INCIVO [Suspect]
     Indication: HEPATITIS C
     Dosage: 2250 MG, QD
     Route: 048
     Dates: start: 20130115, end: 20130325
  2. RIBAVIRIN [Suspect]
     Indication: HEPATITIS C
     Dosage: 1000 MG, QD
     Route: 065
     Dates: start: 20130115
  3. PEGINTERFERON ALFA 2A [Suspect]
     Indication: HEPATITIS C
     Dosage: DOSAGE FORM: UNSPECIFIED
     Route: 065
     Dates: start: 20130115
  4. EPOETIN ALFA [Concomitant]
     Indication: ANAEMIA
     Dosage: 40 IU/KG, QW
     Route: 065
     Dates: start: 20130308, end: 20130325
  5. FERROUS SULFATE [Concomitant]
     Indication: ANAEMIA
     Dosage: UNK
     Route: 065

REACTIONS (2)
  - Rash [Recovered/Resolved]
  - Anaemia [Recovered/Resolved]
